FAERS Safety Report 6607532-6 (Version None)
Quarter: 2010Q1

REPORT INFORMATION
  Report Type: 
  Country: None (occurrence: None)
  Receive Date: 20100301
  Receipt Date: 20100218
  Transmission Date: 20100710
  Serious: Yes (Hospitalization)
  Sender: FDA-Public Use
  Company Number: PHEH2010US02597

PATIENT
  Sex: Female

DRUGS (1)
  1. EXJADE [Suspect]
     Route: 048

REACTIONS (1)
  - HIP SURGERY [None]
